FAERS Safety Report 8457304-5 (Version None)
Quarter: 2012Q2

REPORT INFORMATION
  Report Type: 
  Country: None (occurrence: None)
  Receive Date: 20120621
  Receipt Date: 20120606
  Transmission Date: 20120825
  Serious: No
  Sender: FDA-Public Use
  Company Number: US-ASTRAZENECA-2012SE38041

PATIENT
  Age: 68 Year
  Sex: Male
  Weight: 97.5 kg

DRUGS (2)
  1. SYMBICORT [Suspect]
     Indication: EXPOSURE TO MOULD
     Dosage: 160/4.5 MCG TWO PUFFS TWO TIMES A DAY
     Route: 055
     Dates: start: 20080101
  2. SYMBICORT [Suspect]
     Dosage: 160/4.5 MCG TWO PUFFS IN THE MORNING
     Route: 055

REACTIONS (3)
  - PROSTATOMEGALY [None]
  - DYSPNOEA [None]
  - INTENTIONAL DRUG MISUSE [None]
